FAERS Safety Report 4503216-9 (Version None)
Quarter: 2004Q4

REPORT INFORMATION
  Report Type: 
  Country: None (occurrence: None)
  Receive Date: 20041112
  Receipt Date: 20041101
  Transmission Date: 20050328
  Serious: Yes (Hospitalization)
  Sender: FDA-Public Use
  Company Number: RS004563-GB

PATIENT
  Age: 82 Year
  Sex: Female
  Weight: 55 kg

DRUGS (9)
  1. PARIET (RABEPRAZOLE) (RABEPRAZOLE SODIUM) [Suspect]
     Indication: HIATUS HERNIA
     Dosage: 20 MG, ORAL
     Route: 048
     Dates: start: 20040301, end: 20040623
  2. THIAMINE (THIAMINE) [Concomitant]
  3. ARTIFICIAL TEARS (ARTIFICIAL TEARS) [Concomitant]
  4. METRONIDAZOLE [Concomitant]
  5. THYROXINE (LEVOTHYROXINE SODIUM) [Concomitant]
  6. BENZYLPENICILLIN (BENZYLPENICILLIN) [Concomitant]
  7. ACETAMINOPHEN [Concomitant]
  8. FLUCLOXACILLIN (FLUCLOXACILLIN) [Concomitant]
  9. TEMAZEPAM [Concomitant]

REACTIONS (7)
  - ANAEMIA [None]
  - ARTHRALGIA [None]
  - GROIN PAIN [None]
  - HALLUCINATION, AUDITORY [None]
  - HYPOTHYROIDISM [None]
  - INFLAMMATION [None]
  - MENTAL DISORDER [None]
